FAERS Safety Report 13868043 (Version 1)
Quarter: 2017Q3

REPORT INFORMATION
  Report Type: Spontaneous
  Country: US (occurrence: US)
  Receive Date: 20170814
  Receipt Date: 20170814
  Transmission Date: 20171127
  Serious: Yes (Other)
  Sender: FDA-Public Use
  Company Number: US-CELGENEUS-USA-20170801332

PATIENT

DRUGS (1)
  1. REVLIMID [Suspect]
     Active Substance: LENALIDOMIDE
     Indication: NON-HODGKIN^S LYMPHOMA REFRACTORY
     Dosage: 25 MILLIGRAM
     Route: 048

REACTIONS (4)
  - Febrile neutropenia [Unknown]
  - Acute myeloid leukaemia [Unknown]
  - Non-Hodgkin^s lymphoma refractory [Unknown]
  - Myelodysplastic syndrome [Unknown]
